FAERS Safety Report 11507452 (Version 1)
Quarter: 2015Q3

REPORT INFORMATION
  Report Type: Spontaneous
  Country: US (occurrence: US)
  Receive Date: 20150903
  Receipt Date: 20150903
  Transmission Date: 20151125
  Serious: No
  Sender: FDA-Public Use
  Company Number: US-ELI_LILLY_AND_COMPANY-US200908001894

PATIENT
  Sex: Female

DRUGS (4)
  1. HUMALOG [Suspect]
     Active Substance: INSULIN LISPRO
  2. SYMLIN [Concomitant]
     Active Substance: PRAMLINTIDE ACETATE
  3. LANTUS [Concomitant]
     Active Substance: INSULIN GLARGINE
  4. HUMALOG MIX75/25 [Suspect]
     Active Substance: INSULIN LISPRO

REACTIONS (1)
  - Intercepted drug dispensing error [Recovered/Resolved]

NARRATIVE: CASE EVENT DATE: 20090806
